FAERS Safety Report 24555065 (Version 1)
Quarter: 2024Q4

REPORT INFORMATION
  Report Type: Spontaneous
  Country: US (occurrence: US)
  Receive Date: 20241028
  Receipt Date: 20241028
  Transmission Date: 20250115
  Serious: No
  Sender: ASTELLAS
  Company Number: US-ASTELLAS-2024-AER-013073

PATIENT
  Age: 48 Year
  Sex: Female

DRUGS (1)
  1. LEXISCAN [Suspect]
     Active Substance: REGADENOSON
     Indication: Cardiac stress test
     Dosage: SINGLE-DOSE PRE-FILLED SYRINGE: 0.4 MG/5 ML
     Route: 065
     Dates: start: 20241016, end: 20241016

REACTIONS (1)
  - Injection site extravasation [Unknown]
